FAERS Safety Report 11003281 (Version 1)
Quarter: 2015Q2

REPORT INFORMATION
  Report Type: Spontaneous
  Country: US (occurrence: None)
  Receive Date: 20150402
  Receipt Date: 20150402
  Transmission Date: 20150821
  Serious: Yes (Death, Other)
  Sender: FDA-Public Use
  Company Number: US-2014-14494

PATIENT
  Age: 7 Year
  Sex: Male

DRUGS (12)
  1. CAMPATH [Suspect]
     Active Substance: ALEMTUZUMAB
     Indication: THALASSAEMIA
  2. ACYCLOVIR. [Concomitant]
     Active Substance: ACYCLOVIR
  3. BUSULFEX [Suspect]
     Active Substance: BUSULFAN
     Indication: ALLOGENIC BONE MARROW TRANSPLANTATION THERAPY
     Dosage: 1 MG/KG/DOSE, INTRAVENOUS
     Route: 042
  4. BUSULFEX [Suspect]
     Active Substance: BUSULFAN
     Indication: THALASSAEMIA
     Dosage: 1 MG/KG/DOSE, INTRAVENOUS
     Route: 042
  5. CYCLOPHOSPHAMIDE (CYCLOPHOSPHAMIDE) [Suspect]
     Active Substance: CYCLOPHOSPHAMIDE
     Indication: THALASSAEMIA
  6. FLUDARABINE [Suspect]
     Active Substance: FLUDARABINE PHOSPHATE
     Indication: ALLOGENIC BONE MARROW TRANSPLANTATION THERAPY
     Route: 042
  7. CAMPATH [Suspect]
     Active Substance: ALEMTUZUMAB
     Indication: ALLOGENIC BONE MARROW TRANSPLANTATION THERAPY
  8. CYCLOPHOSPHAMIDE (CYCLOPHOSPHAMIDE) [Suspect]
     Active Substance: CYCLOPHOSPHAMIDE
     Indication: ALLOGENIC BONE MARROW TRANSPLANTATION THERAPY
  9. FLUDARABINE [Suspect]
     Active Substance: FLUDARABINE PHOSPHATE
     Indication: THALASSAEMIA
     Route: 042
  10. MESNA (MESNA) [Suspect]
     Active Substance: MESNA
     Indication: THALASSAEMIA
  11. MESNA (MESNA) [Suspect]
     Active Substance: MESNA
     Indication: ALLOGENIC BONE MARROW TRANSPLANTATION THERAPY
  12. METHYLPREDNISONLONE [Concomitant]

REACTIONS (2)
  - Off label use [None]
  - Interstitial lung disease [None]
